FAERS Safety Report 4437688-5 (Version None)
Quarter: 2004Q3

REPORT INFORMATION
  Report Type: 
  Country: None (occurrence: None)
  Receive Date: 20040831
  Receipt Date: 20040325
  Transmission Date: 20050211
  Serious: No
  Sender: FDA-Public Use
  Company Number: 16223

PATIENT
  Age: 51 Year
  Sex: Male

DRUGS (1)
  1. ZOVIRAX [Suspect]
     Dosage: 5APP PER DAY
     Route: 061
     Dates: start: 20040324

REACTIONS (2)
  - DRUG INEFFECTIVE [None]
  - PHARMACEUTICAL PRODUCT COMPLAINT [None]
